FAERS Safety Report 7547612-4 (Version None)
Quarter: 2011Q2

REPORT INFORMATION
  Report Type: 
  Country: None (occurrence: None)
  Receive Date: 20110614
  Receipt Date: 20110526
  Transmission Date: 20111010
  Serious: No
  Sender: FDA-Public Use
  Company Number: US-B.I. PHARMACEUTICALS,INC./RIDGEFIELD-2011-BP-12334BP

PATIENT
  Sex: Female

DRUGS (9)
  1. SPIRIVA [Suspect]
     Indication: CHRONIC OBSTRUCTIVE PULMONARY DISEASE
     Dosage: 18 MCG
     Route: 055
     Dates: start: 20110201
  2. CORTISONE CREAM [Concomitant]
     Indication: PSORIASIS
  3. CALCIUM CARBONATE [Concomitant]
     Indication: ROUTINE HEALTH MAINTENANCE
  4. TACLONEX [Concomitant]
     Indication: PSORIASIS
  5. ASPIRIN [Concomitant]
     Indication: ROUTINE HEALTH MAINTENANCE
  6. SPIRIVA [Suspect]
     Indication: DYSPNOEA
  7. ZOCOR [Concomitant]
     Indication: BLOOD CHOLESTEROL INCREASED
     Dosage: 40 MG
  8. ENTERIC [Concomitant]
     Dosage: 81 MG
  9. DIOVAN [Concomitant]
     Indication: HYPERTENSION
     Dosage: 80 MG

REACTIONS (2)
  - DYSPNOEA [None]
  - DRUG INEFFECTIVE [None]
